FAERS Safety Report 6726493-2 (Version None)
Quarter: 2010Q2

REPORT INFORMATION
  Report Type: 
  Country: None (occurrence: None)
  Receive Date: 20100514
  Receipt Date: 20100209
  Transmission Date: 20101027
  Serious: Yes (Hospitalization)
  Sender: FDA-Public Use
  Company Number: US-GENENTECH-254244

PATIENT
  Sex: Female
  Weight: 81.179 kg

DRUGS (11)
  1. XOLAIR [Suspect]
     Indication: ASTHMA
     Dosage: 225 MG, Q2W
     Route: 058
     Dates: start: 20080110
  2. ALBUTEROL [Concomitant]
     Indication: DYSPNOEA
     Dosage: 2 PUFF, PRN
     Route: 048
     Dates: start: 19960101
  3. ALBUTEROL [Concomitant]
     Indication: ASTHMA
  4. EPIPEN [Concomitant]
     Indication: HYPERSENSITIVITY
     Dosage: 0.3 A?G, PRN
     Route: 058
     Dates: start: 20080103
  5. FLONASE [Concomitant]
     Indication: HYPERSENSITIVITY
     Dosage: 0.05 UNK, PRN
     Dates: start: 20070101
  6. IPRATROPIUM [Concomitant]
     Indication: DRUG USE FOR UNKNOWN INDICATION
  7. PREDNISONE [Concomitant]
     Indication: BRONCHITIS
     Dosage: 5 MG, QD
     Route: 048
     Dates: start: 20080401
  8. PRILOSEC [Concomitant]
     Indication: GASTROOESOPHAGEAL REFLUX DISEASE
     Dosage: 20 MG, QD
     Route: 048
     Dates: start: 20070101
  9. SINGULAIR [Concomitant]
     Indication: ASTHMA
     Dosage: 10 MG, QD
     Route: 048
     Dates: start: 20000101
  10. SYMBICORT [Concomitant]
     Indication: DRUG USE FOR UNKNOWN INDICATION
  11. XOPENEX [Concomitant]
     Indication: DYSPNOEA
     Dosage: 1.25 MG, PRN
     Dates: start: 20071106

REACTIONS (4)
  - CHEST DISCOMFORT [None]
  - DYSPNOEA [None]
  - HYPERSENSITIVITY [None]
  - PRURITUS GENERALISED [None]
